FAERS Safety Report 13571959 (Version 1)
Quarter: 2017Q2

REPORT INFORMATION
  Report Type: Spontaneous
  Country: US (occurrence: US)
  Receive Date: 20170523
  Receipt Date: 20170523
  Transmission Date: 20170830
  Serious: No
  Sender: FDA-Public Use
  Company Number: US-TEVA-759743ACC

PATIENT
  Sex: Female

DRUGS (1)
  1. NYSTATIN. [Suspect]
     Active Substance: NYSTATIN
     Dosage: 500000 UNITS
     Route: 048

REACTIONS (7)
  - Urticaria [Not Recovered/Not Resolved]
  - Erythema of eyelid [Not Recovered/Not Resolved]
  - Flushing [Not Recovered/Not Resolved]
  - Dyspepsia [Not Recovered/Not Resolved]
  - Pruritus [Not Recovered/Not Resolved]
  - Eyelid exfoliation [Not Recovered/Not Resolved]
  - Erythema [Not Recovered/Not Resolved]

NARRATIVE: CASE EVENT DATE: 20170410
